FAERS Safety Report 7852217-1 (Version None)
Quarter: 2011Q4

REPORT INFORMATION
  Report Type: 
  Country: None (occurrence: None)
  Receive Date: 20111026
  Receipt Date: 20111012
  Transmission Date: 20120403
  Serious: Yes (Hospitalization)
  Sender: FDA-Public Use
  Company Number: US-ELI_LILLY_AND_COMPANY-US201108008354

PATIENT
  Sex: Female

DRUGS (6)
  1. CITRACAL [Concomitant]
  2. METOPROLOL TARTRATE [Concomitant]
  3. ASPIRIN [Concomitant]
  4. FORTEO [Suspect]
     Indication: OSTEOPOROSIS
     Dosage: 20 UG, QD
     Dates: start: 20110803, end: 20110803
  5. VITAMIN TAB [Concomitant]
  6. VITAMIN D [Concomitant]

REACTIONS (8)
  - CHEST PAIN [None]
  - GILBERT'S SYNDROME [None]
  - ANXIETY [None]
  - PLATELET COUNT INCREASED [None]
  - BLOOD BILIRUBIN ABNORMAL [None]
  - ADVERSE EVENT [None]
  - DYSPNOEA [None]
  - VENTRICULAR TACHYCARDIA [None]
